FAERS Safety Report 10194820 (Version 4)
Quarter: 2014Q3

REPORT INFORMATION
  Report Type: Spontaneous
  Country: US (occurrence: US)
  Receive Date: 20140526
  Receipt Date: 20140725
  Transmission Date: 20150326
  Serious: Yes (Other)
  Sender: FDA-Public Use
  Company Number: US-PFIZER INC-2014141039

PATIENT
  Sex: Male

DRUGS (3)
  1. VFEND [Suspect]
     Active Substance: VORICONAZOLE
  2. VFEND [Suspect]
     Active Substance: VORICONAZOLE
     Dosage: UNK
  3. VFEND [Suspect]
     Active Substance: VORICONAZOLE

REACTIONS (1)
  - Transplant [Unknown]
